FAERS Safety Report 18255104 (Version 1)
Quarter: 2020Q3

REPORT INFORMATION
  Report Type: Report from Study
  Country: US (occurrence: US)
  Receive Date: 20200910
  Receipt Date: 20200910
  Transmission Date: 20201103
  Serious: Yes (Hospitalization)
  Sender: FDA-Public Use
  Company Number: US-JNJFOC-A-US2020-202380

PATIENT
  Age: 61 Year
  Sex: Female
  Weight: 41.72 kg

DRUGS (5)
  1. DEMADEX [Concomitant]
     Active Substance: TORSEMIDE
  2. TADALAFIL. [Concomitant]
     Active Substance: TADALAFIL
  3. AMLODIPINE [Concomitant]
     Active Substance: AMLODIPINE BESYLATE
  4. OPSUMIT [Suspect]
     Active Substance: MACITENTAN
     Indication: PULMONARY ARTERIAL HYPERTENSION
     Dosage: 10 MG, QD
     Route: 048
     Dates: end: 20200528
  5. TYVASO [Suspect]
     Active Substance: TREPROSTINIL
     Indication: PRODUCT USED FOR UNKNOWN INDICATION
     Route: 065

REACTIONS (8)
  - Oedema peripheral [Unknown]
  - Feeling abnormal [Unknown]
  - Unevaluable event [Unknown]
  - Alopecia [Unknown]
  - Headache [Unknown]
  - Dyspnoea [Recovered/Resolved]
  - Secretion discharge [Unknown]
  - Fluid retention [Unknown]
